FAERS Safety Report 4802907-X (Version None)
Quarter: 2005Q4

REPORT INFORMATION
  Report Type: 
  Country: None (occurrence: None)
  Receive Date: 20051019
  Receipt Date: 20050803
  Transmission Date: 20060501
  Serious: Yes (Other)
  Sender: FDA-Public Use
  Company Number: DE-NOVOPROD-246021

PATIENT
  Age: 68 Year
  Sex: Female
  Weight: 107 kg

DRUGS (8)
  1. LEVEMIR [Suspect]
     Indication: INSULIN-REQUIRING TYPE II DIABETES MELLITUS
     Dosage: 6 U, QD
     Route: 058
     Dates: start: 20050620, end: 20050623
  2. LEVEMIR [Suspect]
     Dosage: 6 U, QD
     Dates: start: 20050629, end: 20050704
  3. ASS ^CT-ARZNEIMITTEL^ [Concomitant]
     Indication: ILL-DEFINED DISORDER
     Dosage: 100 MG, QD
     Route: 048
  4. PROVAS COMP [Concomitant]
     Indication: ILL-DEFINED DISORDER
     Dosage: 1 UNK, BID
     Route: 048
  5. FUROSEMID ^DAK^ [Concomitant]
     Indication: ILL-DEFINED DISORDER
     Dosage: 40 MG, QD
  6. SIMVASTATIN [Concomitant]
     Indication: ILL-DEFINED DISORDER
     Dosage: 10 MG, QD
     Route: 048
  7. AZUMETOP [Concomitant]
     Indication: ILL-DEFINED DISORDER
     Dosage: 25 MG, QD
     Route: 048
  8. SIOFOR [Concomitant]
     Indication: ILL-DEFINED DISORDER
     Dosage: 850 MG, QD
     Route: 048

REACTIONS (3)
  - MUSCULOSKELETAL PAIN [None]
  - NECK PAIN [None]
  - PYREXIA [None]
